FAERS Safety Report 7515600-X (Version None)
Quarter: 2011Q2

REPORT INFORMATION
  Report Type: 
  Country: None (occurrence: None)
  Receive Date: 20110601
  Receipt Date: 20100721
  Transmission Date: 20111010
  Serious: Yes (Other)
  Sender: FDA-Public Use
  Company Number: US-PFIZER INC-2010053190

PATIENT
  Sex: Female
  Weight: 58 kg

DRUGS (6)
  1. CHANTIX [Suspect]
     Dosage: 1 MG, 2X/DAY
     Route: 048
     Dates: start: 20100401
  2. SUDAFED 12 HOUR [Concomitant]
     Indication: SINUSITIS
     Dosage: UNK
  3. XANAX [Concomitant]
     Indication: ANXIETY
     Dosage: UNK
  4. REQUIP [Concomitant]
     Indication: RESTLESS LEGS SYNDROME
     Dosage: UNK
  5. IBUPROFEN [Concomitant]
     Dosage: UNK
  6. CHANTIX [Suspect]
     Indication: SMOKING CESSATION THERAPY
     Dosage: 0.5 MG, DAILY
     Route: 048
     Dates: start: 20100419, end: 20100401

REACTIONS (6)
  - FATIGUE [None]
  - FLATULENCE [None]
  - CONSTIPATION [None]
  - NAUSEA [None]
  - AGITATION [None]
  - ASTHENIA [None]
